FAERS Safety Report 10072715 (Version 2)
Quarter: 2019Q4

REPORT INFORMATION
  Report Type: Spontaneous
  Country: US (occurrence: US)
  Receive Date: 20140411
  Receipt Date: 20191002
  Transmission Date: 20200122
  Serious: Yes (Other)
  Sender: FDA-Public Use
  Company Number: US-PFIZER INC-2014100554

PATIENT
  Age: 66 Year
  Sex: Female
  Weight: 58.96 kg

DRUGS (3)
  1. ZESTRIL [Concomitant]
     Active Substance: LISINOPRIL
     Indication: HYPERTENSION
     Dosage: 40 MG, DAILY
  2. CELEBREX [Suspect]
     Active Substance: CELECOXIB
     Indication: OSTEOARTHRITIS
  3. CELEBREX [Suspect]
     Active Substance: CELECOXIB
     Indication: FIBROMYALGIA
     Dosage: UNK
     Dates: end: 201402

REACTIONS (5)
  - Mobility decreased [Unknown]
  - Hypertension [Unknown]
  - Malaise [Unknown]
  - Back disorder [Unknown]
  - Pain [Unknown]

NARRATIVE: CASE EVENT DATE: 2014
